FAERS Safety Report 18306571 (Version 1)
Quarter: 2020Q3

REPORT INFORMATION
  Report Type: Spontaneous
  Country: US (occurrence: US)
  Receive Date: 20200923
  Receipt Date: 20200923
  Transmission Date: 20201103
  Serious: Yes (Hospitalization)
  Sender: FDA-Public Use
  Company Number: None

PATIENT
  Age: 73 Year
  Sex: Female
  Weight: 66 kg

DRUGS (7)
  1. NIVOLUMAB 3MG/KG [Suspect]
     Active Substance: NIVOLUMAB
     Indication: GLIOBLASTOMA MULTIFORME
     Route: 042
     Dates: start: 20200720
  2. SIMVASTATIN. [Concomitant]
     Active Substance: SIMVASTATIN
  3. IPILIMUMAB [Concomitant]
     Active Substance: IPILIMUMAB
  4. LISINOPRIL. [Concomitant]
     Active Substance: LISINOPRIL
  5. KEPPRA [Concomitant]
     Active Substance: LEVETIRACETAM
  6. BEVACIZUMAB 15MG/KG [Suspect]
     Active Substance: BEVACIZUMAB
     Indication: GLIOBLASTOMA MULTIFORME
     Route: 042
     Dates: start: 20200720
  7. WARFARIN [Concomitant]
     Active Substance: WARFARIN

REACTIONS (4)
  - Hypophagia [None]
  - International normalised ratio increased [None]
  - Syncope [None]
  - Upper gastrointestinal haemorrhage [None]

NARRATIVE: CASE EVENT DATE: 20200810
